FAERS Safety Report 4414312-9 (Version None)
Quarter: 2004Q3

REPORT INFORMATION
  Report Type: 
  Country: None (occurrence: None)
  Receive Date: 20040803
  Receipt Date: 20040525
  Transmission Date: 20050211
  Serious: Yes (Death, Life-Threatening)
  Sender: FDA-Public Use
  Company Number: PHHO2004JP07563

PATIENT
  Age: 69 Year
  Sex: Male
  Weight: 51 kg

DRUGS (9)
  1. DIOVAN [Suspect]
     Indication: HYPERTENSION
     Dosage: 80 MG / DAY
     Route: 048
     Dates: start: 20030129, end: 20040131
  2. ACECOL [Suspect]
     Indication: HYPERTENSION
     Dosage: 2 MG / DAY
     Route: 048
     Dates: start: 20021023
  3. 8-HOUR BAYER [Concomitant]
     Indication: ANGINA PECTORIS
  4. LASIX [Concomitant]
     Indication: HYPERTENSION
  5. WARFARIN SODIUM [Concomitant]
     Indication: MYOCARDIAL INFARCTION
  6. SELBEX [Concomitant]
     Indication: GASTRIC ULCER
  7. CARVEDILOL [Concomitant]
     Indication: HYPERTENSION
  8. BASEN [Concomitant]
     Indication: DIABETES MELLITUS
  9. NATEGLINIDE [Concomitant]
     Indication: DIABETES MELLITUS

REACTIONS (3)
  - DEATH [None]
  - HYPERKALAEMIA [None]
  - RENAL IMPAIRMENT [None]
